FAERS Safety Report 24585800 (Version 1)
Quarter: 2024Q4

REPORT INFORMATION
  Report Type: Spontaneous
  Country: US (occurrence: None)
  Receive Date: 20241106
  Receipt Date: 20241106
  Transmission Date: 20250115
  Serious: Yes (Hospitalization)
  Sender: Public
  Company Number: None

PATIENT
  Sex: Female

DRUGS (1)
  1. ICATIBANT ACETATE [Suspect]
     Active Substance: ICATIBANT ACETATE
     Indication: Myocardial infarction
     Dosage: OTHER FREQUENCY : 1SYRINGEUNDERTHE SKIN IN ABD AREA AS NEEDED ;?INJECT 1 SYRINGE UNDER THE SKIN IN A
     Route: 058
     Dates: start: 201909

REACTIONS (3)
  - Exposure during pregnancy [None]
  - Caesarean section [None]
  - Hereditary angioedema [None]
